FAERS Safety Report 4924856-9 (Version None)
Quarter: 2006Q1

REPORT INFORMATION
  Report Type: 
  Country: None (occurrence: None)
  Receive Date: 20060227
  Receipt Date: 20060217
  Transmission Date: 20060701
  Serious: Yes (Hospitalization)
  Sender: FDA-Public Use
  Company Number: US-MERCK-0602USA04749

PATIENT
  Age: 50 Year
  Sex: Female
  Weight: 79 kg

DRUGS (3)
  1. VIOXX [Suspect]
     Indication: OSTEOARTHRITIS
     Route: 048
     Dates: start: 20000101, end: 20040901
  2. VIOXX [Suspect]
     Route: 048
     Dates: start: 20000101, end: 20040901
  3. NEXIUM [Concomitant]
     Route: 065

REACTIONS (5)
  - GASTRIC DISORDER [None]
  - HYPERTENSION [None]
  - INTESTINAL FUNCTIONAL DISORDER [None]
  - OVERDOSE [None]
  - RENAL DISORDER [None]
